FAERS Safety Report 14603481 (Version 1)
Quarter: 2018Q1

REPORT INFORMATION
  Report Type: Report from Study
  Country: US (occurrence: US)
  Receive Date: 20180306
  Receipt Date: 20180306
  Transmission Date: 20180509
  Serious: No
  Sender: FDA-Public Use
  Company Number: PHEH2018US008881

PATIENT
  Sex: Female

DRUGS (1)
  1. COSENTYX [Suspect]
     Active Substance: SECUKINUMAB
     Indication: PSORIASIS
     Dosage: 300 MG, QMO
     Route: 058

REACTIONS (7)
  - Injection site bruising [Unknown]
  - Candida infection [Unknown]
  - Pruritus [Unknown]
  - Tonsillitis [Unknown]
  - Injection site haemorrhage [Unknown]
  - Psoriasis [Unknown]
  - Injection site reaction [Unknown]
